FAERS Safety Report 11835516 (Version 1)
Quarter: 2015Q4

REPORT INFORMATION
  Report Type: Spontaneous
  Country: US (occurrence: None)
  Receive Date: 20151214
  Receipt Date: 20151214
  Transmission Date: 20160305
  Serious: Yes (Disabling)
  Sender: FDA-Public Use
  Company Number: None

PATIENT
  Age: 45 Year
  Sex: Female
  Weight: 53.52 kg

DRUGS (2)
  1. ENTYVIO [Suspect]
     Active Substance: VEDOLIZUMAB
     Indication: COLITIS ULCERATIVE
     Dosage: EVERY 8 WEEKS
     Route: 042
     Dates: start: 20150301, end: 20151202
  2. ENTYVIO INFUSIONS [Concomitant]

REACTIONS (8)
  - Mood swings [None]
  - Blood iron decreased [None]
  - Arthralgia [None]
  - Pain [None]
  - Nausea [None]
  - Fatigue [None]
  - Headache [None]
  - Migraine [None]

NARRATIVE: CASE EVENT DATE: 20151211
